FAERS Safety Report 24152673 (Version 1)
Quarter: 2024Q3

REPORT INFORMATION
  Report Type: Spontaneous
  Country: US (occurrence: US)
  Receive Date: 20240730
  Receipt Date: 20240730
  Transmission Date: 20241016
  Serious: No
  Sender: SANOFI AVENTIS
  Company Number: US-SA-SAC20240724001050

PATIENT
  Sex: Male
  Weight: 104 kg

DRUGS (5)
  1. DUPIXENT [Suspect]
     Active Substance: DUPILUMAB
     Indication: Dermatitis atopic
     Dosage: 300 MG
     Route: 058
  2. HYDROCHLOROTHIAZIDE [Concomitant]
     Active Substance: HYDROCHLOROTHIAZIDE
  3. METHOCARBAMOL [Concomitant]
     Active Substance: METHOCARBAMOL
  4. IBUPROFEN [Concomitant]
     Active Substance: IBUPROFEN
  5. XYZAL [Concomitant]
     Active Substance: LEVOCETIRIZINE DIHYDROCHLORIDE

REACTIONS (3)
  - Gait disturbance [Unknown]
  - Musculoskeletal discomfort [Unknown]
  - Arthralgia [Unknown]
